FAERS Safety Report 25577350 (Version 2)
Quarter: 2025Q3

REPORT INFORMATION
  Report Type: Spontaneous
  Country: EU (occurrence: EU)
  Receive Date: 20250718
  Receipt Date: 20250804
  Transmission Date: 20251020
  Serious: Yes (Life-Threatening)
  Sender: TEVA
  Company Number: None

PATIENT
  Age: 35 Year
  Sex: Male
  Weight: 91.8 kg

DRUGS (6)
  1. ESOMEPRAZOLE [Suspect]
     Active Substance: ESOMEPRAZOLE
     Indication: Prophylaxis
     Route: 048
     Dates: start: 20250507, end: 20250511
  2. ZITHROMAX [Suspect]
     Active Substance: AZITHROMYCIN DIHYDRATE
     Indication: Bronchitis
     Route: 048
     Dates: start: 20250507, end: 20250511
  3. RYALTRIS [Suspect]
     Active Substance: MOMETASONE FUROATE MONOHYDRATE\OLOPATADINE HYDROCHLORIDE
     Indication: Rhinitis
     Dosage: 25 MICROGRAMS/600 MICROGRAMS/DOSE
     Route: 045
     Dates: start: 20250507, end: 20250511
  4. ALBUTEROL [Suspect]
     Active Substance: ALBUTEROL
     Indication: Dyspnoea
     Route: 065
     Dates: start: 20250507, end: 20250511
  5. BUDESONIDE\FORMOTEROL\GLYCOPYRRONIUM [Suspect]
     Active Substance: BUDESONIDE\FORMOTEROL\GLYCOPYRRONIUM
     Indication: Dyspnoea
     Dosage: 5 MICROGRAMS/7.2 MICROGRAMS/160 MICROGRAMS
     Route: 065
     Dates: start: 20250507, end: 20250511
  6. PULMICORT TURBUHALER [Suspect]
     Active Substance: BUDESONIDE
     Indication: Dyspnoea
     Dosage: 1 MG/2 ML, SUSPENSION FOR INHALATION BY NEBULIZER IN SINGLE-DOSE CONTAINER
     Route: 065
     Dates: start: 20250507, end: 20250511

REACTIONS (1)
  - Drug reaction with eosinophilia and systemic symptoms [Recovered/Resolved]

NARRATIVE: CASE EVENT DATE: 20250513
